FAERS Safety Report 5888010-9 (Version None)
Quarter: 2008Q3

REPORT INFORMATION
  Report Type: 
  Country: None (occurrence: None)
  Receive Date: 20080917
  Receipt Date: 20080917
  Transmission Date: 20090109
  Serious: Yes (Other)
  Sender: FDA-Public Use
  Company Number: None

PATIENT
  Sex: Male

DRUGS (1)
  1. DOCETAXEL [Suspect]
     Indication: PROSTATE CANCER

REACTIONS (5)
  - BLISTER [None]
  - ERYTHEMA [None]
  - INFUSION SITE EXTRAVASATION [None]
  - PAIN [None]
  - SWELLING [None]
